FAERS Safety Report 12230996 (Version 1)
Quarter: 2016Q2

REPORT INFORMATION
  Report Type: Spontaneous
  Country: PT (occurrence: PT)
  Receive Date: 20160401
  Receipt Date: 20160401
  Transmission Date: 20160815
  Serious: Yes (Other)
  Sender: FDA-Public Use
  Company Number: PT-JNJFOC-20160328715

PATIENT
  Age: 76 Year
  Sex: Male

DRUGS (2)
  1. TAMOXIFENO [Concomitant]
     Indication: BREAST CANCER
     Route: 048
     Dates: start: 20100922
  2. ZALDIAR [Suspect]
     Active Substance: ACETAMINOPHEN\TRAMADOL HYDROCHLORIDE
     Indication: MUSCULOSKELETAL PAIN
     Route: 048
     Dates: start: 201601, end: 201601

REACTIONS (5)
  - Rash [Recovered/Resolved]
  - Skin exfoliation [Recovered/Resolved]
  - Urticaria [Recovered/Resolved]
  - Skin fissures [Recovered/Resolved]
  - Penile exfoliation [Recovered/Resolved]

NARRATIVE: CASE EVENT DATE: 201601
